FAERS Safety Report 5405206-0 (Version None)
Quarter: 2007Q3

REPORT INFORMATION
  Report Type: 
  Country: None (occurrence: None)
  Receive Date: 20070803
  Receipt Date: 20070726
  Transmission Date: 20080115
  Serious: Yes (Other)
  Sender: FDA-Public Use
  Company Number: US-ELI_LILLY_AND_COMPANY-US200706003223

PATIENT
  Age: 64 Year
  Sex: Female

DRUGS (2)
  1. HUMATROPE [Suspect]
     Indication: GROWTH HORMONE DEFICIENCY
     Dosage: 0.3 MG, DAILY (1/D)
     Dates: start: 20070412
  2. SYNTHROID [Concomitant]
     Dates: start: 20070423

REACTIONS (1)
  - SQUAMOUS CELL CARCINOMA OF SKIN [None]
